FAERS Safety Report 9772535 (Version 2)
Quarter: 2014Q1

REPORT INFORMATION
  Report Type: Spontaneous
  Country: US (occurrence: None)
  Receive Date: 20131218
  Receipt Date: 20140318
  Transmission Date: 20141002
  Serious: Yes (Other)
  Sender: FDA-Public Use
  Company Number: 2013CT000098

PATIENT
  Age: 65 Year
  Sex: Female
  Weight: 99.79 kg

DRUGS (8)
  1. KORLYM [Suspect]
     Indication: PITUITARY-DEPENDENT CUSHING^S SYNDROME
     Route: 048
     Dates: start: 201311, end: 20140120
  2. SPIRONOLACTONE [Concomitant]
  3. SYNTHROID [Concomitant]
  4. CRESTOR [Concomitant]
  5. SAVELLA [Concomitant]
  6. SIMVASTATIN [Concomitant]
  7. PITUITARY HORMONE, ANTERIOR LOBE [Concomitant]
  8. JANUVIA [Concomitant]

REACTIONS (8)
  - Migraine [None]
  - Dyspnoea [None]
  - Migraine with aura [None]
  - Asthenia [None]
  - Tremor [None]
  - Increased appetite [None]
  - Cough [None]
  - Urticaria [None]
